FAERS Safety Report 5996136-4 (Version None)
Quarter: 2008Q4

REPORT INFORMATION
  Report Type: 
  Country: None (occurrence: None)
  Receive Date: 20081212
  Receipt Date: 20081009
  Transmission Date: 20090506
  Serious: No
  Sender: FDA-Public Use
  Company Number: US-ABBOTT-08P-163-0481157-00

PATIENT
  Sex: Female
  Weight: 61.29 kg

DRUGS (3)
  1. HUMIRA [Suspect]
     Indication: PSORIATIC ARTHROPATHY
     Route: 058
     Dates: start: 20080401, end: 20080701
  2. LEVOTHYROXINE SODIUM [Concomitant]
     Indication: HYPOTHYROIDISM
  3. METHYLPRED [Concomitant]
     Indication: PSORIATIC ARTHROPATHY
     Dates: start: 20080701

REACTIONS (4)
  - DRUG INEFFECTIVE [None]
  - HYPOKINESIA [None]
  - JOINT SWELLING [None]
  - PAIN [None]
